FAERS Safety Report 7213912-0 (Version None)
Quarter: 2011Q1

REPORT INFORMATION
  Report Type: 
  Country: None (occurrence: None)
  Receive Date: 20110106
  Receipt Date: 20101227
  Transmission Date: 20110831
  Serious: Yes (Death)
  Sender: FDA-Public Use
  Company Number: GXBR2010US02130

PATIENT
  Sex: Male

DRUGS (7)
  1. VERAPAMIL [Suspect]
     Indication: HYPERTENSION
     Dosage: 180 MG, BID
     Route: 048
  2. HYDROXYZINE PAMOATE CAPSULES USP [Suspect]
     Dosage: 50 MG, BID
     Route: 048
     Dates: start: 20101021
  3. TRAZODONE HCL [Suspect]
     Indication: ANXIETY
     Dosage: 50 MG, QHS
     Route: 048
     Dates: start: 20100925, end: 20101001
  4. TRAZODONE HCL [Suspect]
     Dosage: 50 MG, QHS
     Route: 048
     Dates: start: 20101118, end: 20101119
  5. BUSPIRONE [Suspect]
     Indication: ANXIETY
     Dosage: 15 MG, TID
     Route: 048
     Dates: start: 20090101
  6. GABAPENTIN [Suspect]
     Indication: ANXIETY
     Dosage: 300 MG, TID
     Route: 048
     Dates: start: 20100925
  7. MIRTAZAPINE [Suspect]
     Indication: ANXIETY
     Dosage: 30 MG, QHS
     Route: 048
     Dates: start: 20091022

REACTIONS (13)
  - DEPRESSION [None]
  - FEAR OF WEIGHT GAIN [None]
  - ANXIETY [None]
  - WEIGHT DECREASED [None]
  - HEADACHE [None]
  - ABDOMINAL PAIN [None]
  - DIARRHOEA [None]
  - COMPLETED SUICIDE [None]
  - DECREASED APPETITE [None]
  - GASTROINTESTINAL DISORDER [None]
  - HYPOTONIA [None]
  - DYSPEPSIA [None]
  - CHEST PAIN [None]
